FAERS Safety Report 9791395 (Version 2)
Quarter: 2014Q1

REPORT INFORMATION
  Report Type: Report from Study
  Country: AU (occurrence: AU)
  Receive Date: 20140101
  Receipt Date: 20140101
  Transmission Date: 20141002
  Serious: Yes (Hospitalization, Disabling)
  Sender: FDA-Public Use
  Company Number: PHHY2013AU145121

PATIENT
  Age: 51 Year
  Sex: Female

DRUGS (12)
  1. CLOZARIL [Suspect]
     Indication: SCHIZOPHRENIA
     Dosage: 400 MG, UNK
     Route: 048
     Dates: start: 20031126
  2. CLOZARIL [Suspect]
     Dosage: 400 MG, DAILY
     Route: 048
     Dates: start: 20131115, end: 20131126
  3. CLOZARIL [Suspect]
     Dosage: 400 MG, DAILY
     Route: 048
     Dates: start: 20131130, end: 20131204
  4. CLOZARIL [Suspect]
     Dosage: 200 MG, DAILY
     Dates: start: 20131204
  5. TIOTROPIUM [Concomitant]
     Dosage: 18 UG, MANE
     Route: 055
     Dates: start: 201306
  6. MOVICOL [Concomitant]
     Dosage: 1SACHET, DAILY
     Route: 048
  7. SENNA-S (DOCUSATE SODIUM/SENNOSIDES) [Concomitant]
     Dosage: 2 TABLET (50 MG TO 8 MG), BID
     Route: 048
  8. FERROGRAD [Concomitant]
     Dosage: 1 TABLET, DAILY
     Route: 048
  9. SERTRALINE [Concomitant]
     Dosage: 50 MG, MANE
     Route: 048
  10. FLUTICASONA PROPIONATO + SALMETEROL SANDOZ [Concomitant]
     Dosage: 2 PUFFS (250-25UG)
     Route: 055
  11. PANTOPRAZOLE [Concomitant]
     Dosage: 40 MG, MANE
     Route: 048
  12. SALBUTAMOL [Concomitant]
     Dosage: 2 DF (2 PUFFS), PRN
     Route: 055

REACTIONS (7)
  - General physical health deterioration [Unknown]
  - Urinary tract infection pseudomonal [Recovered/Resolved]
  - Delirium [Unknown]
  - Lower respiratory tract infection [Unknown]
  - Pneumonia [Recovered/Resolved]
  - Constipation [Recovering/Resolving]
  - Drug level fluctuating [Unknown]
